FAERS Safety Report 13071329 (Version 4)
Quarter: 2017Q1

REPORT INFORMATION
  Report Type: Other
  Country: US (occurrence: US)
  Receive Date: 20161229
  Receipt Date: 20170308
  Transmission Date: 20170428
  Serious: Yes (Disabling)
  Sender: FDA-Public Use
  Company Number: US-ACORDA-ACO_131824_2016

PATIENT
  Age: 58 Year
  Sex: Female
  Weight: 62.59 kg

DRUGS (2)
  1. AMPYRA [Suspect]
     Active Substance: DALFAMPRIDINE
     Indication: MULTIPLE SCLEROSIS
     Dosage: 10 MG, QD
     Route: 048
     Dates: start: 201612
  2. AMPYRA [Suspect]
     Active Substance: DALFAMPRIDINE
     Dosage: 10 MG, QD
     Route: 048
     Dates: start: 201612, end: 20161215

REACTIONS (9)
  - Asthenia [Recovering/Resolving]
  - Condition aggravated [Recovering/Resolving]
  - Abasia [Recovering/Resolving]
  - Muscle spasticity [Recovering/Resolving]
  - Drug ineffective [Unknown]
  - Walking aid user [Recovering/Resolving]
  - Multiple sclerosis relapse [Recovering/Resolving]
  - Hypokinesia [Recovering/Resolving]
  - Balance disorder [Recovering/Resolving]

NARRATIVE: CASE EVENT DATE: 201612
